FAERS Safety Report 14557585 (Version 5)
Quarter: 2018Q2

REPORT INFORMATION
  Report Type: Report from Study
  Country: US (occurrence: US)
  Receive Date: 20180221
  Receipt Date: 20180606
  Transmission Date: 20180711
  Serious: Yes (Hospitalization, Other)
  Sender: FDA-Public Use
  Company Number: US-JNJFOC-20180133660

PATIENT
  Age: 85 Year
  Sex: Female
  Weight: 54.43 kg

DRUGS (5)
  1. DECADRON [Suspect]
     Active Substance: DEXAMETHASONE
     Indication: PLASMA CELL MYELOMA
     Dates: start: 20170919, end: 20171024
  2. POMALYST [Suspect]
     Active Substance: POMALIDOMIDE
     Indication: PLASMA CELL MYELOMA
     Dates: start: 20170919, end: 20171024
  3. ATROPINE SULFATE W/DIPHENOXYLATE HYDROCHLOR. [Concomitant]
     Active Substance: ATROPINE\DIPHENOXYLATE HYDROCHLORIDE
     Dosage: 2.5-0.025 MG
     Route: 048
     Dates: start: 20170626
  4. DARZALEX [Suspect]
     Active Substance: DARATUMUMAB
     Indication: PLASMA CELL MYELOMA
     Route: 065
     Dates: start: 20170919, end: 20171024
  5. HYDROCODONE/ACETAMINOPHEN [Concomitant]
     Active Substance: ACETAMINOPHEN\HYDROCODONE
     Indication: CANCER PAIN
     Route: 048
     Dates: start: 20150325

REACTIONS (3)
  - Sepsis [Recovered/Resolved]
  - Female genital tract fistula [Recovered/Resolved]
  - Neutrophil count decreased [Recovered/Resolved]

NARRATIVE: CASE EVENT DATE: 20171101
